FAERS Safety Report 7004182-7 (Version None)
Quarter: 2010Q3

REPORT INFORMATION
  Report Type: 
  Country: None (occurrence: None)
  Receive Date: 20100920
  Receipt Date: 20100222
  Transmission Date: 20110219
  Serious: No
  Sender: FDA-Public Use
  Company Number: US-WYE-H13742610

PATIENT
  Sex: Male
  Weight: 68.1 kg

DRUGS (5)
  1. PRISTIQ [Suspect]
     Indication: DEPRESSION
     Dosage: HAS BEEN TAKING IT OFF AND ON AT A DOSE OF 50 MG/DAY
     Route: 048
     Dates: start: 20100201
  2. AMBIEN [Concomitant]
  3. ADDERALL 10 [Concomitant]
  4. TRILEPTAL [Concomitant]
  5. LAMICTAL [Concomitant]

REACTIONS (1)
  - NAUSEA [None]
